FAERS Safety Report 5015909-8 (Version None)
Quarter: 2006Q2

REPORT INFORMATION
  Report Type: 
  Country: None (occurrence: None)
  Receive Date: 20060525
  Receipt Date: 20060508
  Transmission Date: 20061013
  Serious: Yes (Other)
  Sender: FDA-Public Use
  Company Number: CA200605001294

PATIENT
  Age: 52 Year
  Sex: Male

DRUGS (10)
  1. ZYPREXA [Suspect]
     Indication: BIPOLAR DISORDER
     Dosage: SEE IMAGE
     Dates: start: 20060101, end: 20060101
  2. ZYPREXA [Suspect]
     Indication: BIPOLAR DISORDER
     Dosage: SEE IMAGE
     Dates: start: 20060101
  3. VALPROIC ACID [Concomitant]
  4. LEVOTHYROXINE SODIUM [Concomitant]
  5. LOPID [Concomitant]
  6. PRINIVIL [Concomitant]
  7. AVAPRO [Concomitant]
  8. ALLOPURINOL [Concomitant]
  9. LASIX [Concomitant]
  10. SINGULAIR ^MERCK FROSST^ (MONTELUKAST SODIUM) [Concomitant]

REACTIONS (7)
  - ANAEMIA [None]
  - BLAST CELLS PRESENT [None]
  - BLOOD CREATININE INCREASED [None]
  - DIABETES MELLITUS NON-INSULIN-DEPENDENT [None]
  - FATIGUE [None]
  - HYPERSOMNIA [None]
  - RENAL DISORDER [None]
